FAERS Safety Report 10272608 (Version 1)
Quarter: 2014Q2

REPORT INFORMATION
  Report Type: Spontaneous
  Country: IT (occurrence: None)
  Receive Date: 20140630
  Receipt Date: 20140630
  Transmission Date: 20141212
  Serious: Yes (Hospitalization)
  Sender: FDA-Public Use
  Company Number: 2014IL0279

PATIENT
  Age: 23 Year
  Sex: Female

DRUGS (4)
  1. KINERET [Suspect]
     Indication: JUVENILE IDIOPATHIC ARTHRITIS
     Route: 058
     Dates: start: 20140605, end: 20140619
  2. KINERET [Suspect]
     Indication: HISTIOCYTOSIS HAEMATOPHAGIC
     Route: 058
     Dates: start: 20140605, end: 20140619
  3. STEROIDS (CORTICOSTERIOD NOS) (CORTICOSTEROID NOS) [Concomitant]
  4. CICLOSPORIN (CICLOSPORIN) (CICLOSPORIN) [Concomitant]

REACTIONS (2)
  - Dyspnoea [None]
  - Urticaria [None]
